FAERS Safety Report 12525173 (Version 1)
Quarter: 2016Q3

REPORT INFORMATION
  Report Type: Report from Study
  Country: FR (occurrence: FR)
  Receive Date: 20160704
  Receipt Date: 20160704
  Transmission Date: 20161109
  Serious: Yes (Other)
  Sender: FDA-Public Use
  Company Number: FR-UCBSA-2016024601

PATIENT

DRUGS (1)
  1. METHYLPHENIDATE. [Suspect]
     Active Substance: METHYLPHENIDATE
     Indication: PRODUCT USED FOR UNKNOWN INDICATION
     Dosage: UNKNOWN DOSE
     Route: 042

REACTIONS (18)
  - Abscess [Unknown]
  - Aggression [Unknown]
  - Drug abuse [Unknown]
  - Malaise [Unknown]
  - Cardiac disorder [Unknown]
  - Paranoia [Unknown]
  - Depression [Unknown]
  - Weight decreased [Unknown]
  - Overdose [Unknown]
  - Fatigue [Unknown]
  - Incorrect route of drug administration [Unknown]
  - Hallucination [Unknown]
  - Product use issue [Unknown]
  - Stress [Unknown]
  - Insomnia [Unknown]
  - Adverse drug reaction [Unknown]
  - Anxiety [Unknown]
  - Drug diversion [Unknown]
